FAERS Safety Report 5234537-2 (Version None)
Quarter: 2007Q1

REPORT INFORMATION
  Report Type: 
  Country: None (occurrence: None)
  Receive Date: 20070209
  Receipt Date: 20070130
  Transmission Date: 20070707
  Serious: Yes (Other)
  Sender: FDA-Public Use
  Company Number: SE-ELI_LILLY_AND_COMPANY-SE200612000993

PATIENT
  Age: 34 Year
  Sex: Female

DRUGS (5)
  1. CYMBALTA [Suspect]
     Indication: DEPRESSION
     Dosage: 30 MG, DAILY (1/D)
     Route: 048
     Dates: start: 20060803
  2. CYMBALTA [Suspect]
     Dosage: 60 MG, DAILY (1/D)
     Dates: start: 20061017
  3. ZOLPIDEM TARTRATE [Concomitant]
     Indication: INSOMNIA
     Dosage: 10 MG, DAILY (1/D)
     Route: 048
     Dates: start: 20050801
  4. ATARAX [Concomitant]
     Indication: ANXIETY
     Dosage: 25 MG, AS NEEDED
     Route: 048
     Dates: start: 20061107
  5. CYPROTERONE [Concomitant]
     Indication: ALOPECIA
     Dosage: 50 MG, DAILY (1/D)
     Route: 001

REACTIONS (3)
  - ALOPECIA [None]
  - BLOOD PROLACTIN INCREASED [None]
  - POLYCYSTIC OVARIES [None]
